FAERS Safety Report 13550284 (Version 1)
Quarter: 2017Q2

REPORT INFORMATION
  Report Type: Spontaneous
  Country: CA (occurrence: CA)
  Receive Date: 20170516
  Receipt Date: 20170516
  Transmission Date: 20170830
  Serious: No
  Sender: FDA-Public Use
  Company Number: CA-PERNIX THERAPEUTICS-2016PT000084

PATIENT

DRUGS (1)
  1. SILENOR [Suspect]
     Active Substance: DOXEPIN HYDROCHLORIDE
     Indication: INSOMNIA
     Dosage: 3 MG, DAILY
     Route: 065
     Dates: start: 20160330

REACTIONS (1)
  - Nocturia [Unknown]

NARRATIVE: CASE EVENT DATE: 20160330
